FAERS Safety Report 18668732 (Version 1)
Quarter: 2020Q4

REPORT INFORMATION
  Report Type: Spontaneous
  Country: US (occurrence: US)
  Receive Date: 20201228
  Receipt Date: 20201228
  Transmission Date: 20210114
  Serious: No
  Sender: FDA-Public Use
  Company Number: US-BAYER-2020-285269

PATIENT
  Age: 66 Year
  Sex: Male

DRUGS (9)
  1. BABY ASPIRIN [Concomitant]
     Active Substance: ASPIRIN
  2. FISH OIL [Concomitant]
     Active Substance: FISH OIL
  3. TYLENOL [Concomitant]
     Active Substance: ACETAMINOPHEN
  4. PIROXICAM. [Concomitant]
     Active Substance: PIROXICAM
  5. WALGREENS FERROUS SULFATE [Concomitant]
  6. ALEVE [Suspect]
     Active Substance: NAPROXEN SODIUM
     Route: 048
     Dates: start: 20201223
  7. MAGNESIUM [Concomitant]
     Active Substance: MAGNESIUM
  8. VITAMIN D3 [Concomitant]
     Active Substance: CHOLECALCIFEROL
  9. PRAVASTATIN SODIUM. [Concomitant]
     Active Substance: PRAVASTATIN SODIUM

REACTIONS (2)
  - Pruritus [Unknown]
  - Vomiting [None]

NARRATIVE: CASE EVENT DATE: 20201223
